FAERS Safety Report 20186334 (Version 2)
Quarter: 2022Q1

REPORT INFORMATION
  Report Type: Spontaneous
  Country: US (occurrence: None)
  Receive Date: 20211215
  Receipt Date: 20220112
  Transmission Date: 20220424
  Serious: No
  Sender: FDA-Public Use
  Company Number: 2021A805776

PATIENT
  Age: 26788 Day
  Sex: Male
  Weight: 65.3 kg

DRUGS (2)
  1. BYDUREON BCISE [Suspect]
     Active Substance: EXENATIDE
     Indication: Type 2 diabetes mellitus
     Route: 058
  2. SIMVASTATIN [Concomitant]
     Active Substance: SIMVASTATIN

REACTIONS (4)
  - Injection site haemorrhage [Recovered/Resolved]
  - Needle issue [Unknown]
  - Device delivery system issue [Unknown]
  - Device leakage [Unknown]

NARRATIVE: CASE EVENT DATE: 20211103
